FAERS Safety Report 4570578-6 (Version None)
Quarter: 2005Q1

REPORT INFORMATION
  Report Type: 
  Country: None (occurrence: None)
  Receive Date: 20050202
  Receipt Date: 20050119
  Transmission Date: 20050727
  Serious: Yes (Hospitalization)
  Sender: FDA-Public Use
  Company Number: DE_041214855

PATIENT
  Age: 61 Year
  Sex: Female

DRUGS (3)
  1. FLUCTIN-ORAL (FLUOXETINE) (FLUOXETINE HYDROCHLORIDE [Suspect]
     Indication: DEPRESSION
     Dosage: 40 MG
     Dates: start: 20041101
  2. MADOPAR [Concomitant]
  3. ZOPICLONE (ZOPICLONE) [Concomitant]

REACTIONS (1)
  - ELECTROCARDIOGRAM QT PROLONGED [None]
